FAERS Safety Report 22227902 (Version 2)
Quarter: 2023Q2

REPORT INFORMATION
  Report Type: Spontaneous
  Country: JP (occurrence: JP)
  Receive Date: 20230419
  Receipt Date: 20230602
  Transmission Date: 20230721
  Serious: Yes (Other)
  Sender: FDA-Public Use
  Company Number: JP-MH-2023M1040263AA

PATIENT
  Age: 76 Year
  Sex: Female

DRUGS (4)
  1. CARBOPLATIN [Suspect]
     Active Substance: CARBOPLATIN
     Indication: Small cell lung cancer extensive stage
     Dosage: CYCLICAL
     Route: 065
     Dates: start: 20210505
  2. ETOPOSIDE [Suspect]
     Active Substance: ETOPOSIDE
     Indication: Small cell lung cancer extensive stage
     Dosage: CYCLICAL
     Route: 065
     Dates: start: 20210505
  3. ATEZOLIZUMAB [Suspect]
     Active Substance: ATEZOLIZUMAB
     Indication: Small cell lung cancer extensive stage
     Dosage: CYCLICAL
     Route: 065
     Dates: start: 20210505
  4. AMRUBICIN [Suspect]
     Active Substance: AMRUBICIN
     Indication: Small cell lung cancer extensive stage
     Dosage: UNK
     Route: 065
     Dates: start: 20210915, end: 20211022

REACTIONS (2)
  - Disease progression [Unknown]
  - Drug ineffective [Unknown]
